FAERS Safety Report 12694348 (Version 3)
Quarter: 2016Q3

REPORT INFORMATION
  Report Type: Report from Study
  Country: NL (occurrence: NL)
  Receive Date: 20160829
  Receipt Date: 20160921
  Transmission Date: 20161109
  Serious: Yes (Death)
  Sender: FDA-Public Use
  Company Number: NL-ABBVIE-16K-114-1711645-00

PATIENT
  Sex: Female

DRUGS (2)
  1. DUODOPA [Suspect]
     Active Substance: CARBIDOPA\LEVODOPA
     Indication: PARKINSON^S DISEASE
     Route: 050
     Dates: start: 20111114
  2. DUODOPA [Suspect]
     Active Substance: CARBIDOPA\LEVODOPA
     Dosage: MD: 11.0, CD: 4.0, ED: 3.0
     Route: 050
     Dates: end: 20160915

REACTIONS (5)
  - Parkinson^s disease [Not Recovered/Not Resolved]
  - Dysphagia [Fatal]
  - Terminal state [Fatal]
  - Hypophagia [Fatal]
  - Glycosylated haemoglobin increased [Unknown]
